FAERS Safety Report 25484164 (Version 1)
Quarter: 2025Q2

REPORT INFORMATION
  Report Type: Spontaneous
  Country: US (occurrence: US)
  Receive Date: 20250626
  Receipt Date: 20250626
  Transmission Date: 20250716
  Serious: No
  Sender: SANOFI AVENTIS
  Company Number: US-SA-2025SA178770

PATIENT
  Age: 58 Year
  Sex: Female
  Weight: 69.09 kg

DRUGS (2)
  1. DUPIXENT [Suspect]
     Active Substance: DUPILUMAB
     Indication: Psoriasis
     Dosage: 300 MG, QOW
     Route: 058
  2. BIMZELX [BIMEKIZUMAB BKZX] [Concomitant]

REACTIONS (3)
  - Pain [Unknown]
  - Rebound psoriasis [Unknown]
  - Product use in unapproved indication [Unknown]
